FAERS Safety Report 4654053-6 (Version None)
Quarter: 2005Q2

REPORT INFORMATION
  Report Type: 
  Country: None (occurrence: None)
  Receive Date: 20050404
  Receipt Date: 20050110
  Transmission Date: 20051028
  Serious: No
  Sender: FDA-Public Use
  Company Number: USA050187891

PATIENT
  Sex: Female

DRUGS (2)
  1. CYMBALTA [Suspect]
     Indication: DIABETIC NEUROPATHY
     Dosage: 120 MG
  2. CYMBALTA [Suspect]
     Indication: PAIN
     Dosage: 120 MG

REACTIONS (2)
  - HEART RATE INCREASED [None]
  - TREMOR [None]
